FAERS Safety Report 4513800-4 (Version None)
Quarter: 2004Q4

REPORT INFORMATION
  Report Type: 
  Country: None (occurrence: None)
  Receive Date: 20041130
  Receipt Date: 20041029
  Transmission Date: 20050328
  Serious: No
  Sender: FDA-Public Use
  Company Number: US-GLAXOSMITHKLINE-A0531830A

PATIENT
  Sex: Male

DRUGS (6)
  1. WELLBUTRIN XL [Suspect]
     Indication: ILL-DEFINED DISORDER
     Dosage: 300MG PER DAY
     Route: 048
     Dates: start: 20031101
  2. SINGULAIR [Concomitant]
  3. AMBIEN [Concomitant]
  4. VIAGRA [Concomitant]
  5. PREDNISONE [Concomitant]
  6. ZYRTEC [Concomitant]

REACTIONS (1)
  - BLOOD OESTROGEN INCREASED [None]
